FAERS Safety Report 4633592-8 (Version None)
Quarter: 2005Q2

REPORT INFORMATION
  Report Type: 
  Country: None (occurrence: None)
  Receive Date: 20050412
  Receipt Date: 20050412
  Transmission Date: 20051028
  Serious: Yes (Life-Threatening, Hospitalization)
  Sender: FDA-Public Use
  Company Number: None

PATIENT
  Age: 71 Year
  Sex: Male
  Weight: 58.5 kg

DRUGS (2)
  1. DEXAMETHASONE [Suspect]
  2. IBUPROFEN [Suspect]
     Dosage: 400 MG, 1 TAB BI, ORAL
     Route: 048

REACTIONS (1)
  - LOWER GASTROINTESTINAL HAEMORRHAGE [None]
